FAERS Safety Report 14593410 (Version 1)
Quarter: 2018Q1

REPORT INFORMATION
  Report Type: Spontaneous
  Country: US (occurrence: US)
  Receive Date: 20180302
  Receipt Date: 20180302
  Transmission Date: 20180509
  Serious: No
  Sender: FDA-Public Use
  Company Number: US-ENDO PHARMACEUTICALS INC-2017-009166

PATIENT
  Sex: Male
  Weight: 149.66 kg

DRUGS (1)
  1. XIAFLEX [Suspect]
     Active Substance: COLLAGENASE CLOSTRIDIUM HISTOLYTICUM
     Indication: DUPUYTREN^S CONTRACTURE
     Dosage: UNK, ONE INJECTION RIGHT SMALL FINGER
     Route: 026
     Dates: start: 20171113

REACTIONS (2)
  - Dupuytren^s contracture [Not Recovered/Not Resolved]
  - Drug ineffective [Not Recovered/Not Resolved]
